FAERS Safety Report 6479900-7 (Version None)
Quarter: 2009Q4

REPORT INFORMATION
  Report Type: 
  Country: None (occurrence: None)
  Receive Date: 20091208
  Receipt Date: 20091030
  Transmission Date: 20100525
  Serious: Yes (Death)
  Sender: FDA-Public Use
  Company Number: US-SANOFI-AVENTIS-2009SA000606

PATIENT
  Age: 31 Year
  Sex: Female

DRUGS (4)
  1. AMBIEN [Suspect]
     Route: 048
     Dates: start: 20060101
  2. UNISOM [Suspect]
     Dosage: TOOK SEVERAL UNISOM TABLETS
     Route: 048
     Dates: start: 20060101
  3. ALL OTHER THERAPEUTIC PRODUCTS [Suspect]
     Dosage: TOOK AN UNKNOWN DIET PILL
     Dates: start: 20060101
  4. ALCOHOL [Suspect]
     Dosage: WAS REPORTED THAT TABLETS WERE TAKEN WITH SOME ALCOHOL
     Route: 048
     Dates: start: 20060101

REACTIONS (1)
  - VICTIM OF HOMICIDE [None]
